FAERS Safety Report 5148810-X (Version None)
Quarter: 2006Q4

REPORT INFORMATION
  Report Type: 
  Country: None (occurrence: None)
  Receive Date: 20061113
  Receipt Date: 20061102
  Transmission Date: 20070319
  Serious: Yes (Death, Other)
  Sender: FDA-Public Use
  Company Number: PHHO2006US18298

PATIENT
  Age: 65 Year
  Sex: Female

DRUGS (3)
  1. LETROZOLE [Suspect]
     Indication: BREAST CANCER METASTATIC
     Dosage: 2.5 MG, QD
     Route: 048
     Dates: start: 20050527, end: 20050723
  2. LETROZOLE [Suspect]
     Dosage: NO TREATMENT
     Dates: start: 20050724, end: 20050804
  3. LETROZOLE [Suspect]
     Dosage: 2.5 MG, QD
     Route: 048
     Dates: start: 20050805

REACTIONS (6)
  - BREAST PAIN [None]
  - CARDIOMYOPATHY [None]
  - CHEST PAIN [None]
  - DEATH [None]
  - EJECTION FRACTION ABNORMAL [None]
  - VENTRICULAR DYSFUNCTION [None]
